FAERS Safety Report 6386577-8 (Version None)
Quarter: 2009Q4

REPORT INFORMATION
  Report Type: 
  Country: None (occurrence: None)
  Receive Date: 20091002
  Receipt Date: 20090324
  Transmission Date: 20100525
  Serious: No
  Sender: FDA-Public Use
  Company Number: US-ASTRAZENECA-2009UW07491

PATIENT
  Age: 51 Year
  Sex: Female

DRUGS (9)
  1. ARIMIDEX [Suspect]
     Indication: BREAST CANCER
     Route: 048
     Dates: start: 20040101
  2. NEXIUM [Suspect]
     Indication: GASTROOESOPHAGEAL REFLUX DISEASE
     Route: 048
  3. CALCIUM D [Concomitant]
  4. CALTRATE D [Concomitant]
  5. CELEBREX [Concomitant]
  6. KLONOPIN [Concomitant]
     Indication: ANXIETY
  7. SYNTHROID [Concomitant]
     Indication: HYPOTHYROIDISM
  8. LEXAPRO [Concomitant]
     Indication: DEPRESSION
  9. LIPITOR [Concomitant]
     Indication: BLOOD CHOLESTEROL INCREASED

REACTIONS (2)
  - ABDOMINAL DISCOMFORT [None]
  - HOT FLUSH [None]
